FAERS Safety Report 4390492-9 (Version None)
Quarter: 2004Q3

REPORT INFORMATION
  Report Type: 
  Country: None (occurrence: None)
  Receive Date: 20040701
  Receipt Date: 20040701
  Transmission Date: 20050211
  Serious: Yes (Hospitalization)
  Sender: FDA-Public Use
  Company Number: None

PATIENT
  Sex: Male
  Weight: 118.2 kg

DRUGS (1)
  1. PPD [Suspect]
     Indication: TUBERCULIN TEST
     Dosage: 0.1 ML ID X 1 [1 TIME ONLY]
     Route: 023

REACTIONS (4)
  - INJECTION SITE VESICLES [None]
  - RASH GENERALISED [None]
  - RASH PAPULAR [None]
  - RASH PRURITIC [None]
